FAERS Safety Report 4528783-0 (Version None)
Quarter: 2004Q4

REPORT INFORMATION
  Report Type: 
  Country: None (occurrence: None)
  Receive Date: 20041214
  Receipt Date: 20041130
  Transmission Date: 20050328
  Serious: Yes (Death, Hospitalization, Other)
  Sender: FDA-Public Use
  Company Number: 2004-00565

PATIENT
  Age: 73 Year
  Sex: Male

DRUGS (2)
  1. VELCADE [Suspect]
     Indication: MULTIPLE MYELOMA
     Dosage: INTRAVENOUS
     Route: 042
     Dates: start: 20040330, end: 20040608
  2. BETA BLOCKING AGENTS [Concomitant]

REACTIONS (19)
  - ASPARTATE AMINOTRANSFERASE INCREASED [None]
  - DEPRESSED LEVEL OF CONSCIOUSNESS [None]
  - FLUID INTAKE REDUCED [None]
  - GASTRITIS [None]
  - HAEMODIALYSIS [None]
  - HAEMOGLOBIN DECREASED [None]
  - HEPATIC STEATOSIS [None]
  - HEPATITIS B [None]
  - INFECTION IN AN IMMUNOCOMPROMISED HOST [None]
  - MARKEDLY REDUCED DIETARY INTAKE [None]
  - MULTI-ORGAN FAILURE [None]
  - PAIN OF SKIN [None]
  - POLYNEUROPATHY [None]
  - PSYCHOTIC DISORDER [None]
  - PYREXIA [None]
  - RENAL FAILURE ACUTE [None]
  - SCROTAL PAIN [None]
  - SEPSIS [None]
  - SYSTEMIC INFLAMMATORY RESPONSE SYNDROME [None]
